FAERS Safety Report 7313275-6 (Version None)
Quarter: 2011Q1

REPORT INFORMATION
  Report Type: 
  Country: None (occurrence: None)
  Receive Date: 20110225
  Receipt Date: 20110217
  Transmission Date: 20110831
  Serious: Yes (Hospitalization)
  Sender: FDA-Public Use
  Company Number: FR-ASTELLAS-2011US000589

PATIENT
  Sex: Male
  Weight: 49 kg

DRUGS (22)
  1. AMBISOME [Suspect]
     Indication: ASPERGILLOSIS
  2. LOXEN [Concomitant]
     Indication: HYPERTENSION
     Dosage: 2 X 50
     Route: 048
     Dates: start: 20110101
  3. PHOCYTAN [Concomitant]
     Indication: PRODUCT USED FOR UNKNOWN INDICATION
     Dosage: 3A
     Route: 042
     Dates: start: 20110105
  4. KEPPRA [Concomitant]
     Indication: PRODUCT USED FOR UNKNOWN INDICATION
     Dosage: 2 X 500
     Route: 048
     Dates: start: 20101222
  5. TAVANIC [Concomitant]
     Indication: PRODUCT USED FOR UNKNOWN INDICATION
     Dosage: UNK
     Route: 065
  6. STILNOX [Concomitant]
     Indication: INSOMNIA
     Dosage: 10 MG, UNKNOWN/D
     Route: 048
     Dates: start: 20110116
  7. MAGNESIUM [Concomitant]
     Indication: PRODUCT USED FOR UNKNOWN INDICATION
     Dosage: 4A
     Route: 042
     Dates: start: 20110105
  8. CHEMOTHERAPEUTICS NOS [Concomitant]
     Indication: ACUTE MYELOID LEUKAEMIA
     Dosage: UNK
     Route: 065
     Dates: end: 20101228
  9. ZELITREX [Concomitant]
     Indication: PRODUCT USED FOR UNKNOWN INDICATION
     Dosage: UNK
     Route: 065
  10. FORTUM [Concomitant]
     Indication: PRODUCT USED FOR UNKNOWN INDICATION
     Dosage: UNK
     Route: 042
  11. VANCOMYCINE [Concomitant]
     Indication: PRODUCT USED FOR UNKNOWN INDICATION
     Dosage: 2 G, UNKNOWN/D
     Route: 042
     Dates: start: 20110111
  12. IONOK+KCL [Concomitant]
     Indication: PRODUCT USED FOR UNKNOWN INDICATION
     Dosage: UNK
     Route: 042
     Dates: start: 20101226
  13. GRANOCYTE [Concomitant]
     Indication: PRODUCT USED FOR UNKNOWN INDICATION
     Dosage: 3/DAY
     Route: 042
     Dates: start: 20110110
  14. HEPARIN [Concomitant]
     Indication: PRODUCT USED FOR UNKNOWN INDICATION
     Dosage: 6000 IU, UNKNOWN/D
     Route: 042
     Dates: start: 20101223
  15. PERFALGAN [Concomitant]
     Indication: PRODUCT USED FOR UNKNOWN INDICATION
     Dosage: 1 G, QID
     Route: 042
     Dates: start: 20110105
  16. ACUPAN [Concomitant]
     Indication: PRODUCT USED FOR UNKNOWN INDICATION
     Dosage: UNK
     Route: 065
  17. AMBISOME [Suspect]
     Indication: PROPHYLAXIS
     Dosage: 200 MG, UID/QD
     Route: 042
     Dates: start: 20110105, end: 20110208
  18. SERESTA [Concomitant]
     Indication: PRODUCT USED FOR UNKNOWN INDICATION
     Dosage: 50 MG, UNKNOWN/D
     Route: 048
  19. MOPRAL [Concomitant]
     Indication: PRODUCT USED FOR UNKNOWN INDICATION
     Dosage: 20 MG, UNKNOWN/D
     Route: 048
     Dates: start: 20110105
  20. NOXAFIL [Suspect]
     Indication: PROPHYLAXIS
     Dosage: 2 X 400
     Route: 048
     Dates: start: 20101222, end: 20110208
  21. NOXAFIL [Suspect]
     Indication: ASPERGILLOSIS
  22. POTASSIUM CHLORIDE [Concomitant]
     Indication: PRODUCT USED FOR UNKNOWN INDICATION
     Dosage: 12 G, UNKNOWN/D
     Route: 042
     Dates: start: 20110108

REACTIONS (3)
  - RENAL TUBULAR ACIDOSIS [None]
  - HAEMATURIA [None]
  - RENAL DISORDER [None]
